FAERS Safety Report 9163255 (Version 1)
Quarter: 2013Q1

REPORT INFORMATION
  Report Type: Spontaneous
  Country: FR (occurrence: FR)
  Receive Date: 20130314
  Receipt Date: 20130314
  Transmission Date: 20140127
  Serious: Yes (Hospitalization)
  Sender: FDA-Public Use
  Company Number: FR-GLAXOSMITHKLINE-B0873133A

PATIENT
  Age: 82 None
  Sex: Female

DRUGS (7)
  1. DEROXAT [Suspect]
     Indication: PRODUCT USED FOR UNKNOWN INDICATION
     Dosage: 20MG UNKNOWN
     Route: 048
     Dates: end: 20121117
  2. TEGRETOL [Suspect]
     Indication: PRODUCT USED FOR UNKNOWN INDICATION
     Dosage: 200MG TWICE PER DAY
     Route: 048
     Dates: end: 20121117
  3. INDAPAMIDE [Suspect]
     Indication: PRODUCT USED FOR UNKNOWN INDICATION
     Dosage: 1.5MG PER DAY
     Route: 048
     Dates: end: 20121117
  4. CLOPIDOGREL [Suspect]
     Indication: PRODUCT USED FOR UNKNOWN INDICATION
     Dosage: 75MG PER DAY
     Route: 048
     Dates: end: 20121117
  5. ACEBUTOLOL [Concomitant]
     Route: 065
  6. LEVOTHYROX [Concomitant]
     Route: 065
  7. PERINDOPRIL [Concomitant]
     Route: 065

REACTIONS (2)
  - Hyponatraemia [Recovered/Resolved]
  - General physical health deterioration [Unknown]
